FAERS Safety Report 4757355-8 (Version None)
Quarter: 2005Q3

REPORT INFORMATION
  Report Type: 
  Country: None (occurrence: None)
  Receive Date: 20050831
  Receipt Date: 20050825
  Transmission Date: 20060218
  Serious: Yes (Other)
  Sender: FDA-Public Use
  Company Number: GB-SOLVAY-00205002771

PATIENT
  Age: 71 Year
  Sex: Female
  Weight: 65 kg

DRUGS (3)
  1. COVERSYL [Suspect]
     Indication: BLOOD PRESSURE INCREASED
     Dosage: DAILY DOSE: 4 MILLIGRAM(S)
     Route: 048
     Dates: start: 20050401, end: 20050625
  2. DILTIAZEM HCL [Concomitant]
     Indication: ILL-DEFINED DISORDER
     Dosage: DAILY DOSE:  UNKNOWN
     Route: 065
     Dates: start: 20041210
  3. FOSAMAX [Concomitant]
     Indication: ILL-DEFINED DISORDER
     Dosage: DAILY DOSE:  UNKNOWN
     Route: 048
     Dates: start: 20030128

REACTIONS (3)
  - CHOKING [None]
  - COUGH [None]
  - MALAISE [None]
